FAERS Safety Report 7688411-2 (Version None)
Quarter: 2011Q3

REPORT INFORMATION
  Report Type: 
  Country: None (occurrence: None)
  Receive Date: 20110817
  Receipt Date: 20110815
  Transmission Date: 20111222
  Serious: Yes (Death)
  Sender: FDA-Public Use
  Company Number: NZ-PFIZER INC-2011187534

PATIENT

DRUGS (4)
  1. DOXAZOSIN MESYLATE [Suspect]
     Dosage: UNK
  2. INFLUENZA VIRUS VACCINE INACTIVATED [Suspect]
  3. ACETAMINOPHEN [Suspect]
  4. LEVOTHYROXINE SODIUM [Suspect]

REACTIONS (1)
  - DEATH [None]
